FAERS Safety Report 12810246 (Version 2)
Quarter: 2017Q1

REPORT INFORMATION
  Report Type: Spontaneous
  Country: US (occurrence: US)
  Receive Date: 20161005
  Receipt Date: 20170111
  Transmission Date: 20170428
  Serious: No
  Sender: FDA-Public Use
  Company Number: US-EAGLE PHARMACEUTICALS, INC.-US-2016EAG000642

PATIENT
  Age: 80 Year
  Sex: Female

DRUGS (4)
  1. BENDEKA [Suspect]
     Active Substance: BENDAMUSTINE HYDROCHLORIDE
     Dosage: 151 MG, UNK (CYCLE 2)
  2. BENDEKA [Suspect]
     Active Substance: BENDAMUSTINE HYDROCHLORIDE
     Dosage: 151 MG, UNK (CYCLE 3)
     Dates: start: 201606
  3. BENDEKA [Suspect]
     Active Substance: BENDAMUSTINE HYDROCHLORIDE
     Indication: B-CELL LYMPHOMA
     Dosage: 151 MG, UNK (CYCLE 1)
     Route: 042
  4. BENDEKA [Suspect]
     Active Substance: BENDAMUSTINE HYDROCHLORIDE
     Dosage: 151 MG, UNK (CYCLE 4)
     Dates: start: 201607

REACTIONS (4)
  - Peripheral swelling [Unknown]
  - Hypoaesthesia [Unknown]
  - Infusion site phlebitis [Unknown]
  - Infusion related reaction [Unknown]

NARRATIVE: CASE EVENT DATE: 201606
